FAERS Safety Report 19569350 (Version 1)
Quarter: 2021Q3

REPORT INFORMATION
  Report Type: Spontaneous
  Country: IT (occurrence: IT)
  Receive Date: 20210716
  Receipt Date: 20210716
  Transmission Date: 20211014
  Serious: Yes (Other)
  Sender: FDA-Public Use
  Company Number: IT-MYLANLABS-2021M1042089

PATIENT
  Age: 62 Year
  Sex: Male
  Weight: 77 kg

DRUGS (4)
  1. COMIRNATY [Suspect]
     Active Substance: TOZINAMERAN
     Indication: COVID-19 IMMUNISATION
     Dosage: 1 DOSAGE FORM, TOTAL
     Route: 030
     Dates: start: 20210318, end: 20210318
  2. CARVEDILOLO MYLAN GENERICS [Suspect]
     Active Substance: CARVEDILOL
     Indication: HYPERTENSION
     Dosage: 37.5 MILLIGRAM, QD
     Route: 048
  3. DOXAZOSINA ALM [Concomitant]
     Dosage: 1 DOSAGE FORM
  4. ZESTORETIC [Concomitant]
     Active Substance: HYDROCHLOROTHIAZIDE\LISINOPRIL
     Dosage: 1 DOSAGE FORM

REACTIONS (1)
  - Reynold^s syndrome [Recovered/Resolved]

NARRATIVE: CASE EVENT DATE: 20210328
